FAERS Safety Report 14558482 (Version 1)
Quarter: 2018Q1

REPORT INFORMATION
  Report Type: Spontaneous
  Country: US (occurrence: US)
  Receive Date: 20180221
  Receipt Date: 20180221
  Transmission Date: 20180509
  Serious: No
  Sender: FDA-Public Use
  Company Number: US-PERRIGO-17US027735

PATIENT
  Age: 60 Year
  Sex: Female
  Weight: 58.96 kg

DRUGS (2)
  1. LOPERAMIDE HYDROCHLORIDE. [Suspect]
     Active Substance: LOPERAMIDE HYDROCHLORIDE
     Indication: DIARRHOEA
     Dosage: 2 MG, TWICE
     Route: 048
     Dates: start: 20171006, end: 20171006
  2. LOPERAMIDE HYDROCHLORIDE. [Suspect]
     Active Substance: LOPERAMIDE HYDROCHLORIDE
     Dosage: 1/3 OF A TABLET, QD
     Route: 048
     Dates: start: 20171008, end: 20171011

REACTIONS (5)
  - Wrong technique in product usage process [Recovered/Resolved]
  - Faecaloma [Not Recovered/Not Resolved]
  - Incorrect drug administration duration [Recovered/Resolved]
  - Intentional product use issue [Recovered/Resolved]
  - Underdose [Recovered/Resolved]

NARRATIVE: CASE EVENT DATE: 20171006
